FAERS Safety Report 7737734-7 (Version None)
Quarter: 2011Q3

REPORT INFORMATION
  Report Type: 
  Country: None (occurrence: None)
  Receive Date: 20110908
  Receipt Date: 20110905
  Transmission Date: 20111222
  Serious: Yes (Hospitalization)
  Sender: FDA-Public Use
  Company Number: FR-ABBOTT-11P-056-0851854-00

PATIENT
  Age: 44 Year
  Sex: Male

DRUGS (6)
  1. LAMOTRIGINE [Concomitant]
     Indication: PRODUCT USED FOR UNKNOWN INDICATION
     Dosage: 200 MG DAILY
  2. TEGRETOL [Concomitant]
     Indication: PRODUCT USED FOR UNKNOWN INDICATION
  3. ROSUVASTATIN CALCIUM [Concomitant]
     Indication: PRODUCT USED FOR UNKNOWN INDICATION
  4. PANTOPRAZOLE SODIUM [Concomitant]
     Indication: PRODUCT USED FOR UNKNOWN INDICATION
  5. DEPAKENE [Suspect]
     Indication: EPILEPSY
     Dosage: 1500 MG DAILY
     Route: 048
     Dates: start: 20110704, end: 20110801
  6. LAMOTRIGINE [Concomitant]
     Dosage: 25 MG DAILY

REACTIONS (6)
  - NAUSEA [None]
  - DIARRHOEA [None]
  - FALL [None]
  - DRUG INEFFECTIVE [None]
  - VOMITING [None]
  - DIZZINESS [None]
